FAERS Safety Report 18755212 (Version 2)
Quarter: 2021Q1

REPORT INFORMATION
  Report Type: Spontaneous
  Country: DE (occurrence: DE)
  Receive Date: 20210119
  Receipt Date: 20210223
  Transmission Date: 20210419
  Serious: Yes (Hospitalization)
  Sender: FDA-Public Use
  Company Number: DE-FERRINGPH-2021FE00173

PATIENT
  Sex: Male

DRUGS (1)
  1. FIRMAGON [Suspect]
     Active Substance: DEGARELIX ACETATE
     Indication: PRODUCT USED FOR UNKNOWN INDICATION
     Dosage: ONE BOOSTED INJECTION THE FIRST TIME AND ONE NORMAL INJECTION THE SECOND TIME
     Route: 065

REACTIONS (1)
  - Cerebral haemorrhage [Recovering/Resolving]
